FAERS Safety Report 5475872-2 (Version None)
Quarter: 2007Q3

REPORT INFORMATION
  Report Type: 
  Country: None (occurrence: None)
  Receive Date: 20070925
  Receipt Date: 20070618
  Transmission Date: 20080115
  Serious: Yes (Other)
  Sender: FDA-Public Use
  Company Number: 2007BH005560

PATIENT
  Age: 77 Year
  Sex: Female
  Weight: 58.9676 kg

DRUGS (6)
  1. ATIVAN [Suspect]
     Indication: INSOMNIA
     Dates: start: 20070401, end: 20070401
  2. BETAPACE [Concomitant]
  3. PLAVIX [Concomitant]
  4. COLCHICINE [Concomitant]
  5. METOPROLOL [Concomitant]
  6. SPIRONOLACTONE [Concomitant]

REACTIONS (2)
  - AMNESIA [None]
  - HALLUCINATION [None]
